FAERS Safety Report 6609005-3 (Version None)
Quarter: 2010Q1

REPORT INFORMATION
  Report Type: 
  Country: None (occurrence: None)
  Receive Date: 20100225
  Receipt Date: 20100225
  Transmission Date: 20100710
  Serious: Yes (Hospitalization, Other)
  Sender: FDA-Public Use
  Company Number: None

PATIENT
  Sex: Female

DRUGS (1)
  1. PROTONIX [Suspect]
     Indication: GASTROOESOPHAGEAL REFLUX DISEASE
     Dosage: INITIALLY 40MG ONCE A DAY AFTER 5 DAYS INCREASED TO 40MG TWICE A DAY
     Dates: start: 20100107, end: 20100218

REACTIONS (7)
  - DRUG INEFFECTIVE [None]
  - LYMPHADENOPATHY [None]
  - MUSCULOSKELETAL STIFFNESS [None]
  - OROPHARYNGEAL PAIN [None]
  - PYREXIA [None]
  - THERAPY REGIMEN CHANGED [None]
  - URTICARIA [None]
